FAERS Safety Report 7227043-7 (Version None)
Quarter: 2011Q1

REPORT INFORMATION
  Report Type: 
  Country: None (occurrence: None)
  Receive Date: 20110114
  Receipt Date: 19990331
  Transmission Date: 20110831
  Serious: Yes (Congenital Anomaly)
  Sender: FDA-Public Use
  Company Number: US-ROCHE-102721

PATIENT
  Sex: Male
  Weight: 4.4 kg

DRUGS (2)
  1. MULTIVITAMIN [Concomitant]
  2. LARIAM [Suspect]
     Indication: MALARIA PROPHYLAXIS
     Dates: start: 19980301, end: 19980701

REACTIONS (1)
  - CONGENITAL HEARING DISORDER [None]
